FAERS Safety Report 7367121-5 (Version None)
Quarter: 2011Q1

REPORT INFORMATION
  Report Type: 
  Country: None (occurrence: None)
  Receive Date: 20110322
  Receipt Date: 20110318
  Transmission Date: 20110831
  Serious: Yes (Hospitalization, Other)
  Sender: FDA-Public Use
  Company Number: BR-ABBOTT-11P-020-0712900-00

PATIENT
  Sex: Female
  Weight: 32 kg

DRUGS (1)
  1. HUMIRA [Suspect]
     Indication: RHEUMATOID ARTHRITIS
     Route: 058
     Dates: start: 20101124

REACTIONS (9)
  - NECK PAIN [None]
  - BACK PAIN [None]
  - BONE PAIN [None]
  - INFLUENZA [None]
  - MENSTRUATION IRREGULAR [None]
  - ANAEMIA [None]
  - PAIN IN EXTREMITY [None]
  - DIZZINESS [None]
  - PYREXIA [None]
